FAERS Safety Report 7397177-5 (Version None)
Quarter: 2011Q2

REPORT INFORMATION
  Report Type: 
  Country: None (occurrence: None)
  Receive Date: 20110406
  Receipt Date: 20110401
  Transmission Date: 20111010
  Serious: Yes (Other)
  Sender: FDA-Public Use
  Company Number: D0070798A

PATIENT
  Sex: Female
  Weight: 60 kg

DRUGS (2)
  1. AZILECT [Concomitant]
     Dosage: 1MG IN THE MORNING
     Route: 065
  2. REQUIP [Suspect]
     Indication: PARKINSON'S DISEASE
     Dosage: 2MG PER DAY
     Route: 048
     Dates: start: 20100301

REACTIONS (4)
  - CONFUSIONAL STATE [None]
  - AGGRESSION [None]
  - RESTLESSNESS [None]
  - HALLUCINATION [None]
